FAERS Safety Report 12360791 (Version 3)
Quarter: 2016Q4

REPORT INFORMATION
  Report Type: Spontaneous
  Country: US (occurrence: US)
  Receive Date: 20160512
  Receipt Date: 20161201
  Transmission Date: 20170207
  Serious: Yes (Hospitalization, Other)
  Sender: FDA-Public Use
  Company Number: US-BAYER-2016-091168

PATIENT
  Age: 46 Year
  Sex: Female

DRUGS (3)
  1. XANAX [Concomitant]
     Active Substance: ALPRAZOLAM
     Indication: ANXIETY
  2. MIRENA [Suspect]
     Active Substance: LEVONORGESTREL
     Indication: MENORRHAGIA
  3. MIRENA [Suspect]
     Active Substance: LEVONORGESTREL
     Indication: CONTRACEPTION
     Dosage: 20 MCG/24HR, CONT
     Route: 015
     Dates: start: 20110603, end: 20160210

REACTIONS (9)
  - Device difficult to use [None]
  - Uterine perforation [None]
  - Device breakage [None]
  - Salpingectomy [None]
  - Cystostomy [None]
  - Complication of device removal [None]
  - Adhesiolysis [None]
  - Oophorectomy [None]
  - Pain [None]

NARRATIVE: CASE EVENT DATE: 201512
